FAERS Safety Report 15538927 (Version 2)
Quarter: 2018Q4

REPORT INFORMATION
  Report Type: Spontaneous
  Country: ZA (occurrence: ZA)
  Receive Date: 20181022
  Receipt Date: 20181120
  Transmission Date: 20190205
  Serious: Yes (Other)
  Sender: FDA-Public Use
  Company Number: ZA-PFIZER INC-2018424630

PATIENT
  Age: 46 Year
  Sex: Female
  Weight: 58 kg

DRUGS (1)
  1. METHOTREXATE. [Suspect]
     Active Substance: METHOTREXATE
     Indication: SERONEGATIVE ARTHRITIS
     Dosage: 25 MG, WEEKLY
     Route: 030
     Dates: start: 201806

REACTIONS (4)
  - Synovitis [Unknown]
  - Liver function test increased [Recovering/Resolving]
  - Drug ineffective [Unknown]
  - Psoriatic arthropathy [Unknown]
